FAERS Safety Report 4461383-X (Version None)
Quarter: 2004Q3

REPORT INFORMATION
  Report Type: 
  Country: None (occurrence: None)
  Receive Date: 20040928
  Receipt Date: 20020308
  Transmission Date: 20050211
  Serious: Yes (Other)
  Sender: FDA-Public Use
  Company Number: PHEH2002US02523

PATIENT
  Age: 39 Year
  Sex: Female
  Weight: 61 kg

DRUGS (2)
  1. TEGASEROD VS PLACEBO [Suspect]
     Indication: CONSTIPATION
     Dosage: 6 MG, BID
     Route: 048
     Dates: start: 20011114, end: 20020207
  2. DULCOLAX [Concomitant]
     Indication: CONSTIPATION
     Dosage: UNK, PRN

REACTIONS (7)
  - CAESAREAN SECTION [None]
  - DRUG EXPOSURE DURING PREGNANCY [None]
  - FOETAL HEART RATE DECELERATION [None]
  - GESTATIONAL DIABETES [None]
  - PRE-ECLAMPSIA [None]
  - PROTEINURIA [None]
  - TACHYCARDIA FOETAL [None]
